FAERS Safety Report 5193611-X (Version None)
Quarter: 2006Q4

REPORT INFORMATION
  Report Type: 
  Country: None (occurrence: None)
  Receive Date: 20061228
  Receipt Date: 20061018
  Transmission Date: 20070319
  Serious: No
  Sender: FDA-Public Use
  Company Number: US-GLAXOSMITHKLINE-A0624037A

PATIENT
  Sex: Female

DRUGS (6)
  1. FLONASE [Suspect]
     Indication: SINUS DISORDER
     Dosage: 2SPR PER DAY
     Route: 045
     Dates: start: 20061016, end: 20061017
  2. ATENOLOL [Concomitant]
  3. VALTREX [Concomitant]
  4. XANAX [Concomitant]
  5. UNKNOWN MEDICATION [Concomitant]
  6. KEFLEX [Concomitant]

REACTIONS (1)
  - ABDOMINAL PAIN UPPER [None]
